FAERS Safety Report 23738385 (Version 2)
Quarter: 2024Q2

REPORT INFORMATION
  Report Type: Spontaneous
  Country: GB (occurrence: GB)
  Receive Date: 20240412
  Receipt Date: 20240419
  Transmission Date: 20240715
  Serious: Yes (Other)
  Sender: FDA-Public Use
  Company Number: GB-MYLANLABS-2024M1028385

PATIENT
  Age: 64 Year
  Sex: Male
  Weight: 93.2 kg

DRUGS (5)
  1. CLOZARIL [Suspect]
     Active Substance: CLOZAPINE
     Indication: Schizophrenia
     Dosage: UNK, BID (100MGS AM AND 250MGS NOCTE (TWICE DAILY)
     Route: 048
     Dates: start: 20110402, end: 20240326
  2. CLOZARIL [Suspect]
     Active Substance: CLOZAPINE
     Dosage: 12.5 MILLIGRAM, QD (ONCE DAILY)
     Route: 048
     Dates: start: 20240328
  3. CLOZARIL [Suspect]
     Active Substance: CLOZAPINE
     Dosage: UNK, BID (100MG AM AND 250MG NOCTE)
     Route: 048
     Dates: start: 20240329
  4. PHENOBARBITAL CALCIUM [Concomitant]
     Active Substance: PHENOBARBITAL CALCIUM
     Dosage: 30 MILLIGRAM, BID (TWICE DAILY)
     Route: 065
  5. LACTULOSE [Concomitant]
     Active Substance: LACTULOSE
     Dosage: 10 MILLILITER, TID (THRICE DAILY)
     Route: 065

REACTIONS (5)
  - White blood cell count decreased [Recovered/Resolved]
  - Haemoglobin decreased [Recovered/Resolved]
  - Platelet count decreased [Recovered/Resolved]
  - Neutrophil count decreased [Recovered/Resolved]
  - Eosinophil count decreased [Not Recovered/Not Resolved]

NARRATIVE: CASE EVENT DATE: 20240226
